FAERS Safety Report 6938701-3 (Version None)
Quarter: 2010Q3

REPORT INFORMATION
  Report Type: 
  Country: None (occurrence: None)
  Receive Date: 20100820
  Receipt Date: 20100803
  Transmission Date: 20110219
  Serious: Yes (Other)
  Sender: FDA-Public Use
  Company Number: JPI-P-011739

PATIENT
  Age: 62 Year
  Sex: Female
  Weight: 70.3075 kg

DRUGS (2)
  1. LUVOX [Suspect]
     Indication: OBSESSIVE-COMPULSIVE DISORDER
     Dosage: 100 MG (100 MG, 1 IN 1 D), ORAL, 200 MG (200 MG, 1 IN 1 D), ORAL
     Route: 048
     Dates: start: 20100101, end: 20100701
  2. LUVOX [Suspect]
     Indication: OBSESSIVE-COMPULSIVE DISORDER
     Dosage: 100 MG (100 MG, 1 IN 1 D), ORAL, 200 MG (200 MG, 1 IN 1 D), ORAL
     Route: 048
     Dates: start: 20100701

REACTIONS (10)
  - ASTHENIA [None]
  - DIZZINESS [None]
  - EAR INJURY [None]
  - FALL [None]
  - HEAD INJURY [None]
  - LIMB INJURY [None]
  - MULTIPLE INJURIES [None]
  - MUSCLE SPASMS [None]
  - MUSCULAR WEAKNESS [None]
  - POOR QUALITY SLEEP [None]
